FAERS Safety Report 4528312-1 (Version None)
Quarter: 2004Q4

REPORT INFORMATION
  Report Type: 
  Country: None (occurrence: None)
  Receive Date: 20041130
  Receipt Date: 20040816
  Transmission Date: 20050328
  Serious: No
  Sender: FDA-Public Use
  Company Number: WAES 0408USA01321

PATIENT

DRUGS (1)
  1. ZETIA [Suspect]
     Dosage: 10 MG DAILY PO
     Route: 048

REACTIONS (1)
  - STOMACH DISCOMFORT [None]
